FAERS Safety Report 17527761 (Version 2)
Quarter: 2020Q1

REPORT INFORMATION
  Report Type: Spontaneous
  Country: US (occurrence: US)
  Receive Date: 20200311
  Receipt Date: 20200330
  Transmission Date: 20200409
  Serious: Yes (Other)
  Sender: FDA-Public Use
  Company Number: US-VERTEX PHARMACEUTICALS-2020-004924

PATIENT
  Age: 10 Year
  Sex: Female
  Weight: 28.21 kg

DRUGS (2)
  1. BACTRIM [Concomitant]
     Active Substance: SULFAMETHOXAZOLE\TRIMETHOPRIM
  2. SYMDEKO [Suspect]
     Active Substance: IVACAFTOR\TEZACAFTOR
     Indication: CYSTIC FIBROSIS
     Dosage: 1 WHIT ETAB AM; 1 BLUE TAB PM
     Route: 048
     Dates: start: 20190802

REACTIONS (1)
  - Mole excision [Recovered/Resolved]

NARRATIVE: CASE EVENT DATE: 20200215
